FAERS Safety Report 11951453 (Version 2)
Quarter: 2016Q1

REPORT INFORMATION
  Report Type: Spontaneous
  Country: CN (occurrence: CN)
  Receive Date: 20160126
  Receipt Date: 20160129
  Transmission Date: 20160526
  Serious: No
  Sender: FDA-Public Use
  Company Number: CN-009507513-1508CHN003930

PATIENT
  Age: 66 Year
  Sex: Female
  Weight: 58 kg

DRUGS (11)
  1. EMEND [Suspect]
     Active Substance: APREPITANT
     Indication: PROPHYLAXIS OF NAUSEA AND VOMITING
     Dosage: 125 MG, ONCE,DAY 1
     Route: 048
     Dates: start: 20150605, end: 20150605
  2. CYCLOPHOSPHAMIDE. [Concomitant]
     Active Substance: CYCLOPHOSPHAMIDE
     Indication: CHEMOTHERAPY
     Dosage: DOSE/ SCHEDULE 0.9G, TREATMENT REGIMEN CEF, TREATMENT CYCLE 1/UNK
     Route: 041
     Dates: start: 20150605, end: 20150605
  3. EMEND [Suspect]
     Active Substance: APREPITANT
     Dosage: 80 MG, ONCE,DAY 2
     Route: 048
     Dates: start: 20150606, end: 20150606
  4. EMEND [Suspect]
     Active Substance: APREPITANT
     Dosage: 80 MG, ONCE
     Route: 048
     Dates: start: 20150607, end: 20150607
  5. EPIRUBICIN HYDROCHLORIDE. [Concomitant]
     Active Substance: EPIRUBICIN HYDROCHLORIDE
     Indication: CHEMOTHERAPY
     Dosage: DOSE/ SCHEDULE-150 MG,TREATMENT CYCLE 1/UNK, TREATMENT REGIMEN CEF
     Route: 041
     Dates: start: 20150605, end: 20150605
  6. ONDANSETRON HYDROCHLORIDE. [Concomitant]
     Active Substance: ONDANSETRON HYDROCHLORIDE
     Indication: PROPHYLAXIS OF NAUSEA AND VOMITING
     Dosage: 8 MG, QD
     Route: 042
     Dates: start: 20150605, end: 20150605
  7. FLUOROURACIL. [Concomitant]
     Active Substance: FLUOROURACIL
     Indication: CHEMOTHERAPY
     Dosage: DOSE/ SCHEDULE-0.9G,TREATMENT CYCLE 1/UNK, TREATMENT REGIMEN CEF
     Route: 041
     Dates: start: 20150605, end: 20150605
  8. AMLODIPINE BESYLATE. [Concomitant]
     Active Substance: AMLODIPINE BESYLATE
     Indication: HYPERTENSION
     Dosage: 5 MG, QD
     Route: 048
     Dates: start: 2015
  9. TROPISETRON HYDROCHLORIDE [Concomitant]
     Active Substance: TROPISETRON HYDROCHLORIDE
     Indication: PROPHYLAXIS OF NAUSEA AND VOMITING
     Dosage: 5 MG, QD
     Route: 042
     Dates: start: 20150605, end: 20150605
  10. DEXAMETHASONE SODIUM PHOSPHATE. [Concomitant]
     Active Substance: DEXAMETHASONE SODIUM PHOSPHATE
     Indication: PROPHYLAXIS OF NAUSEA AND VOMITING
     Dosage: TOTAL DAILY DOSE 20 MG, QD
     Route: 042
     Dates: start: 20150605, end: 20150605
  11. ONDANSETRON HYDROCHLORIDE. [Concomitant]
     Active Substance: ONDANSETRON HYDROCHLORIDE
     Indication: PROPHYLAXIS OF NAUSEA AND VOMITING
     Dosage: 4 MG, BID
     Route: 048
     Dates: start: 20150605, end: 20150609

REACTIONS (2)
  - White blood cell count decreased [Recovered/Resolved]
  - Neutrophil count decreased [Recovered/Resolved]

NARRATIVE: CASE EVENT DATE: 20150615
